FAERS Safety Report 20123420 (Version 3)
Quarter: 2022Q1

REPORT INFORMATION
  Report Type: Spontaneous
  Country: GB (occurrence: US)
  Receive Date: 20211129
  Receipt Date: 20220105
  Transmission Date: 20220423
  Serious: Yes (Hospitalization, Other)
  Sender: FDA-Public Use
  Company Number: GB-SA-2021SA368434

PATIENT

DRUGS (13)
  1. GEMCITABINE [Suspect]
     Active Substance: GEMCITABINE
     Indication: Synovial sarcoma
     Dosage: 900 MG, QCY, CYCLICAL
     Route: 042
     Dates: start: 20210421, end: 20210421
  2. GEMCITABINE [Suspect]
     Active Substance: GEMCITABINE
     Dosage: 900 MG, QCY, CYCLICAL
     Route: 042
     Dates: start: 20210421
  3. CHLORPHENIRAMINE MALEATE [Suspect]
     Active Substance: CHLORPHENIRAMINE MALEATE
     Indication: Prophylaxis
     Dosage: UNK
     Route: 065
     Dates: start: 20210428, end: 20210428
  4. DOCETAXEL [Suspect]
     Active Substance: DOCETAXEL
     Indication: Synovial sarcoma
     Dosage: 121.5 MG, QCY, CYCLICAL
     Route: 042
     Dates: start: 20210428, end: 20210428
  5. DOCETAXEL [Suspect]
     Active Substance: DOCETAXEL
     Dosage: 121.5 MG, QCY, CYCLICAL
     Route: 042
     Dates: start: 20210428
  6. ONDANSETRON [Suspect]
     Active Substance: ONDANSETRON
     Indication: Prophylaxis
     Dosage: UNK
     Route: 065
     Dates: start: 20210428, end: 20210428
  7. ACETAMINOPHEN [Suspect]
     Active Substance: ACETAMINOPHEN
     Indication: Prophylaxis
     Dosage: UNK
     Route: 065
     Dates: start: 20210428, end: 20210428
  8. RAMUCIRUMAB [Suspect]
     Active Substance: RAMUCIRUMAB
     Indication: Synovial sarcoma
     Dosage: 493.2 MG, QCY, CYCLICAL
     Route: 042
     Dates: start: 20210421, end: 20210421
  9. RAMUCIRUMAB [Suspect]
     Active Substance: RAMUCIRUMAB
     Dosage: 493.2 MG, QCY, CYCLICAL
     Route: 042
     Dates: start: 20210421
  10. CHLORPHENIRAMINE MALEATE [Concomitant]
     Active Substance: CHLORPHENIRAMINE MALEATE
     Indication: Product used for unknown indication
     Dosage: UNK
     Route: 065
     Dates: start: 20210428, end: 20210428
  11. ONDANSETRON [Concomitant]
     Active Substance: ONDANSETRON
     Indication: Product used for unknown indication
     Dosage: UNK
     Route: 065
     Dates: start: 20210428, end: 20210428
  12. ACETAMINOPHEN [Concomitant]
     Active Substance: ACETAMINOPHEN
     Indication: Prophylaxis
     Dosage: UNK
     Route: 065
     Dates: start: 20210428, end: 20210428
  13. ACETAMINOPHEN [Concomitant]
     Active Substance: ACETAMINOPHEN
     Dosage: UNK
     Route: 065
     Dates: start: 20210508

REACTIONS (6)
  - Haemoptysis [Recovered/Resolved]
  - Sepsis [Recovered/Resolved]
  - Chest pain [Unknown]
  - Cough [Unknown]
  - Alanine aminotransferase increased [Unknown]
  - Pyrexia [Recovered/Resolved]

NARRATIVE: CASE EVENT DATE: 20210507
